FAERS Safety Report 12653232 (Version 3)
Quarter: 2016Q3

REPORT INFORMATION
  Report Type: Spontaneous
  Country: GB (occurrence: GB)
  Receive Date: 20160815
  Receipt Date: 20160830
  Transmission Date: 20161109
  Serious: Yes (Death, Other)
  Sender: FDA-Public Use
  Company Number: GB-GILEAD-2016-0227745

PATIENT
  Age: 43 Year
  Sex: Male
  Weight: 78 kg

DRUGS (21)
  1. PREDNISOLONE. [Concomitant]
     Active Substance: PREDNISOLONE
  2. SENNA                              /00142201/ [Concomitant]
     Active Substance: SENNA LEAF
  3. CARBOCISTEINE [Concomitant]
     Active Substance: CARBOCYSTEINE
  4. FERROUS SULFATE. [Concomitant]
     Active Substance: FERROUS SULFATE
  5. FOLIC ACID. [Concomitant]
     Active Substance: FOLIC ACID
  6. LACTULOSE. [Concomitant]
     Active Substance: LACTULOSE
  7. CLOPIDOGREL [Concomitant]
     Active Substance: CLOPIDOGREL BISULFATE
  8. MEBEVERINE [Concomitant]
     Active Substance: MEBEVERINE
  9. SALBUTAMOL [Concomitant]
     Active Substance: ALBUTEROL
  10. VENLAFAXINE [Concomitant]
     Active Substance: VENLAFAXINE HYDROCHLORIDE
  11. SILDENAFIL. [Concomitant]
     Active Substance: SILDENAFIL
  12. ATORVASTATIN [Concomitant]
     Active Substance: ATORVASTATIN
  13. CALCICHEW [Concomitant]
     Active Substance: CALCIUM CARBONATE
  14. DIAZEPAM. [Concomitant]
     Active Substance: DIAZEPAM
  15. LANSOPRAZOLE. [Concomitant]
     Active Substance: LANSOPRAZOLE
  16. METHADONE [Concomitant]
     Active Substance: METHADONE HYDROCHLORIDE
  17. PREGABALIN. [Concomitant]
     Active Substance: PREGABALIN
  18. QUETIAPINE. [Concomitant]
     Active Substance: QUETIAPINE
  19. RABEPRAZOLE [Concomitant]
     Active Substance: RABEPRAZOLE
  20. SODIUM VALPROATE [Concomitant]
     Active Substance: VALPROATE SODIUM
  21. HARVONI [Suspect]
     Active Substance: LEDIPASVIR\SOFOSBUVIR
     Indication: CHRONIC HEPATITIS C
     Dosage: 1 DF, UNK
     Route: 048
     Dates: start: 20160526, end: 20160714

REACTIONS (1)
  - Death [Fatal]

NARRATIVE: CASE EVENT DATE: 20160714
